FAERS Safety Report 8491024-6 (Version None)
Quarter: 2012Q3

REPORT INFORMATION
  Report Type: 
  Country: None (occurrence: None)
  Receive Date: 20120706
  Receipt Date: 20120628
  Transmission Date: 20120928
  Serious: Yes (Hospitalization)
  Sender: FDA-Public Use
  Company Number: US-BAYER-2010-003081

PATIENT
  Age: 29 Year
  Sex: Female
  Weight: 61 kg

DRUGS (13)
  1. YASMIN [Suspect]
     Indication: CONTRACEPTION
     Route: 048
  2. KLONOPIN [Concomitant]
     Route: 048
  3. TPN [Concomitant]
     Dosage: UNK
     Route: 048
     Dates: start: 20081220
  4. IBUPROFEN [Concomitant]
     Dosage: UNK
     Dates: start: 19970101, end: 20100101
  5. SELEGILINE [Concomitant]
     Dosage: 12 MG/24HR, UNK
     Route: 061
  6. YAZ [Suspect]
     Indication: CONTRACEPTION
     Dosage: UNK
     Route: 048
     Dates: start: 20071001, end: 20081225
  7. ZYPREXA [Concomitant]
     Indication: BIPOLAR DISORDER
     Dosage: UNK
     Route: 048
     Dates: start: 20080601, end: 20090401
  8. TPN [Concomitant]
     Indication: DECREASED APPETITE
     Dosage: UNK
     Route: 048
     Dates: start: 20081220
  9. YASMIN [Suspect]
     Indication: PREMENSTRUAL SYNDROME
  10. ASCORBIC ACID [Concomitant]
     Dosage: UNK
     Dates: start: 19970101, end: 20100101
  11. CLONAZEPAM [Concomitant]
     Indication: PANIC DISORDER
     Dosage: UNK
     Dates: start: 20070401, end: 20091001
  12. YAZ [Suspect]
     Indication: PREMENSTRUAL SYNDROME
  13. ANTIDEPRESSANTS [Concomitant]
     Indication: DEPRESSION
     Dosage: UNK
     Dates: start: 20070601, end: 20091001

REACTIONS (6)
  - EMOTIONAL DISTRESS [None]
  - DYSPNOEA [None]
  - INJURY [None]
  - PULMONARY EMBOLISM [None]
  - CHEST PAIN [None]
  - PAIN [None]
